FAERS Safety Report 18765250 (Version 2)
Quarter: 2021Q1

REPORT INFORMATION
  Report Type: Report from Study
  Country: KR (occurrence: KR)
  Receive Date: 20210120
  Receipt Date: 20210210
  Transmission Date: 20210419
  Serious: Yes (Hospitalization, Other)
  Sender: FDA-Public Use
  Company Number: KR-PFIZER INC-2021038179

PATIENT
  Age: 58 Year
  Sex: Female
  Weight: 53.8 kg

DRUGS (4)
  1. MEGAFORMIN [Concomitant]
     Indication: DIABETES MELLITUS
     Dosage: MEGAFORMIN SR, 500 MG, 1X/DAY
     Route: 048
     Dates: start: 20191224
  2. TALAZOPARIB. [Suspect]
     Active Substance: TALAZOPARIB
     Indication: BREAST CANCER
     Dosage: 1 MG, 1X/DAY
     Route: 048
     Dates: start: 20201224, end: 20210108
  3. TALAZOPARIB. [Suspect]
     Active Substance: TALAZOPARIB
     Indication: GENE MUTATION
  4. TARGIN [Concomitant]
     Active Substance: NALOXONE HYDROCHLORIDE\OXYCODONE HYDROCHLORIDE
     Indication: PAIN MANAGEMENT
     Dosage: 40 MG, 2X/DAY
     Route: 048
     Dates: start: 20200821

REACTIONS (6)
  - Pancytopenia [Recovered/Resolved]
  - Neutrophil count decreased [Recovered/Resolved]
  - Platelet count decreased [Recovering/Resolving]
  - Haemoglobin decreased [Recovering/Resolving]
  - Decreased appetite [Recovered/Resolved]
  - Thrombocytopenia [Recovered/Resolved]

NARRATIVE: CASE EVENT DATE: 20210115
